FAERS Safety Report 5709404-8 (Version None)
Quarter: 2008Q2

REPORT INFORMATION
  Report Type: 
  Country: None (occurrence: None)
  Receive Date: 20080417
  Receipt Date: 20080408
  Transmission Date: 20081010
  Serious: No
  Sender: FDA-Public Use
  Company Number: APP200800273

PATIENT
  Age: 66 Year
  Sex: Male

DRUGS (1)
  1. HEPARIN SODIUM INJECTION [Suspect]
     Indication: HAEMODIALYSIS
     Dosage: INTRAVENOUS
     Route: 042

REACTIONS (4)
  - DIARRHOEA [None]
  - HYPOTENSION [None]
  - PRURITUS [None]
  - RASH [None]
